FAERS Safety Report 25625126 (Version 1)
Quarter: 2025Q3

REPORT INFORMATION
  Report Type: Spontaneous
  Country: US (occurrence: US)
  Receive Date: 20250731
  Receipt Date: 20250731
  Transmission Date: 20251020
  Serious: No
  Sender: PRINSTON PHARMACEUTICAL
  Company Number: US-PRINSTON PHARMACEUTICAL INC.-2025PRN00175

PATIENT
  Sex: Male

DRUGS (1)
  1. CLONAZEPAM [Suspect]
     Active Substance: CLONAZEPAM
     Dosage: 1 MG, 2X/DAY

REACTIONS (9)
  - Feeling abnormal [Unknown]
  - Brain fog [Unknown]
  - Body temperature decreased [Unknown]
  - Paraesthesia [Unknown]
  - Withdrawal syndrome [Recovered/Resolved]
  - Anger [Unknown]
  - Panic attack [Unknown]
  - Unevaluable event [Unknown]
  - Drug ineffective [Unknown]
